FAERS Safety Report 4699581-2 (Version None)
Quarter: 2005Q2

REPORT INFORMATION
  Report Type: 
  Country: None (occurrence: None)
  Receive Date: 20050624
  Receipt Date: 20050622
  Transmission Date: 20051028
  Serious: Yes (Death, Hospitalization)
  Sender: FDA-Public Use
  Company Number: PHHO2005JP10048

PATIENT
  Age: 82 Year
  Sex: Female
  Weight: 38 kg

DRUGS (6)
  1. LASIX [Suspect]
     Indication: HYPERTENSION
     Dosage: 20 MG, QD
     Route: 048
     Dates: start: 20030115, end: 20041206
  2. LIPITOR [Concomitant]
     Dates: end: 20041206
  3. NICHI E-NATE [Concomitant]
     Indication: HYPERLIPIDAEMIA
     Dates: end: 20041206
  4. AMLODIN [Concomitant]
     Indication: HYPERTENSION
     Dates: end: 20041206
  5. LENDORM [Concomitant]
     Indication: INSOMNIA
     Dates: end: 20041206
  6. DIOVAN [Suspect]
     Indication: HYPERTENSION
     Dosage: 80 MG, QD
     Route: 048
     Dates: start: 20030526, end: 20041206

REACTIONS (4)
  - CEREBRAL INFARCTION [None]
  - DEPRESSED LEVEL OF CONSCIOUSNESS [None]
  - FALL [None]
  - RESPIRATORY ARREST [None]
